FAERS Safety Report 8958796 (Version 1)
Quarter: 2012Q4

REPORT INFORMATION
  Report Type: Spontaneous
  Country: US (occurrence: None)
  Receive Date: 20121206
  Receipt Date: 20121206
  Transmission Date: 20130627
  Serious: Yes (Life-Threatening)
  Sender: FDA-Public Use
  Company Number: None

PATIENT
  Age: 66 Year
  Sex: Male
  Weight: 79.83 kg

DRUGS (1)
  1. DAPSONE [Suspect]

REACTIONS (4)
  - Pulmonary embolism [None]
  - Platelet count decreased [None]
  - Anaemia [None]
  - Inappropriate schedule of drug administration [None]
